FAERS Safety Report 6334677-0 (Version None)
Quarter: 2009Q3

REPORT INFORMATION
  Report Type: 
  Country: None (occurrence: None)
  Receive Date: 20090831
  Receipt Date: 20090818
  Transmission Date: 20100115
  Serious: Yes (Hospitalization)
  Sender: FDA-Public Use
  Company Number: TR-BAYER-200926423GPV

PATIENT
  Age: 45 Year
  Sex: Female
  Weight: 60 kg

DRUGS (4)
  1. BETAFERON [Suspect]
     Indication: MULTIPLE SCLEROSIS
     Route: 058
     Dates: start: 20011207, end: 20090701
  2. BETAFERON [Suspect]
     Dates: start: 20090816
  3. APRANAX [Concomitant]
     Indication: ANALGESIC THERAPY
  4. FERRO SANOL [Concomitant]
     Route: 058
     Dates: start: 20011207

REACTIONS (1)
  - GASTRIC HAEMORRHAGE [None]
